FAERS Safety Report 9391935 (Version 8)
Quarter: 2013Q3

REPORT INFORMATION
  Report Type: Spontaneous
  Country: CO (occurrence: CO)
  Receive Date: 20130709
  Receipt Date: 20130917
  Transmission Date: 20140515
  Serious: Yes (Other)
  Sender: FDA-Public Use
  Company Number: CO-VERTEX PHARMACEUTICALS INC-2013-007794

PATIENT
  Age: 35 Year
  Sex: Female
  Weight: 55 kg

DRUGS (4)
  1. INCIVO [Suspect]
     Indication: HEPATITIS C
     Dosage: 1125 MG, BID
     Route: 048
     Dates: start: 20130626
  2. INTERFERON [Concomitant]
     Indication: HEPATITIS C
     Dosage: DOSAGE FORM: AMPOULES
     Route: 058
     Dates: start: 20130726
  3. RIBAVIRIN [Concomitant]
     Indication: HEPATITIS C
     Dosage: DOSAGE FORM: TABLET
     Route: 048
     Dates: start: 20130726
  4. RIBAVIRIN [Concomitant]
     Dosage: 200 MG, UNK, 3 IN 1 DAY

REACTIONS (24)
  - Hypotension [Unknown]
  - Tachycardia [Not Recovered/Not Resolved]
  - Depression [Unknown]
  - Pyrexia [Recovered/Resolved]
  - Syncope [Unknown]
  - Decreased appetite [Unknown]
  - Cold sweat [Unknown]
  - Malaise [Unknown]
  - Chills [Unknown]
  - Dry mouth [Unknown]
  - Dizziness [None]
  - Abdominal pain [Unknown]
  - Asthenia [Unknown]
  - Fatigue [Unknown]
  - Pharyngitis [Recovered/Resolved]
  - Headache [Recovered/Resolved]
  - Abdominal discomfort [Not Recovered/Not Resolved]
  - Metrorrhagia [Unknown]
  - Pruritus [Not Recovered/Not Resolved]
  - Nausea [Not Recovered/Not Resolved]
  - Rash [None]
  - Vomiting [Not Recovered/Not Resolved]
  - Diarrhoea [Recovered/Resolved]
  - Proctalgia [Unknown]
